FAERS Safety Report 23620682 (Version 1)
Quarter: 2024Q1

REPORT INFORMATION
  Report Type: Spontaneous
  Country: DE (occurrence: DE)
  Receive Date: 20240312
  Receipt Date: 20240312
  Transmission Date: 20240409
  Serious: Yes (Death, Other)
  Sender: FDA-Public Use
  Company Number: DE-ALKEM LABORATORIES LIMITED-DE-ALKEM-2024-03891

PATIENT
  Sex: Male
  Weight: 84 kg

DRUGS (2)
  1. EVEROLIMUS [Suspect]
     Active Substance: EVEROLIMUS
     Indication: Heart transplant
     Dosage: 5 MILLIGRAM, QD (TABLET)
     Route: 065
     Dates: start: 20080709
  2. MYCOPHENOLATE MOFETIL [Suspect]
     Active Substance: MYCOPHENOLATE MOFETIL
     Indication: Heart transplant
     Dosage: 720 MILLIGRAM
     Route: 065
     Dates: start: 20090203

REACTIONS (2)
  - Death [Fatal]
  - Product use issue [Fatal]

NARRATIVE: CASE EVENT DATE: 20100301
